FAERS Safety Report 5644164-0 (Version None)
Quarter: 2008Q1

REPORT INFORMATION
  Report Type: 
  Country: None (occurrence: None)
  Receive Date: 20080227
  Receipt Date: 20080211
  Transmission Date: 20080703
  Serious: Yes (Hospitalization, Other)
  Sender: FDA-Public Use
  Company Number: 2008S1001400

PATIENT
  Age: 16 Year
  Sex: Female
  Weight: 70.7611 kg

DRUGS (2)
  1. AMNESTEEM [Suspect]
     Indication: ACNE
     Dosage: 40 MG, DAILY; ORAL
     Route: 048
     Dates: start: 20070716, end: 20071221
  2. AMNESTEEM [Suspect]
     Indication: ACNE
     Dosage: 30 MG;DAILY;ORAL
     Route: 048
     Dates: start: 20070830, end: 20071221

REACTIONS (3)
  - GENITAL LESION [None]
  - STREPTOCOCCAL INFECTION [None]
  - WOUND INFECTION [None]
